FAERS Safety Report 13334658 (Version 1)
Quarter: 2017Q1

REPORT INFORMATION
  Report Type: Spontaneous
  Country: CA (occurrence: CA)
  Receive Date: 20170314
  Receipt Date: 20170314
  Transmission Date: 20170428
  Serious: Yes (Life-Threatening)
  Sender: FDA-Public Use
  Company Number: CA-TEVA-749831ACC

PATIENT
  Age: 81 Year
  Sex: Male
  Weight: 56 kg

DRUGS (15)
  1. CLOPIDOGREL [Concomitant]
     Active Substance: CLOPIDOGREL BISULFATE
  2. DOCUSATE SODIUM. [Concomitant]
     Active Substance: DOCUSATE SODIUM
  3. NOVO-PERIDOL [Suspect]
     Active Substance: HALOPERIDOL
     Dosage: 2 MILLIGRAM DAILY;
     Route: 065
  4. SENNOSIDES. [Concomitant]
     Active Substance: SENNOSIDES
  5. ASPIRIN. [Concomitant]
     Active Substance: ASPIRIN
  6. CALCIUM AND VITAMIN D [Concomitant]
     Active Substance: CALCIUM\VITAMIN D
  7. PANTOPRAZOLE [Concomitant]
     Active Substance: PANTOPRAZOLE SODIUM
  8. CITALOPRAM [Suspect]
     Active Substance: CITALOPRAM HYDROBROMIDE
     Indication: MAJOR DEPRESSION
     Dosage: 10 MILLIGRAM DAILY;
     Route: 048
  9. DUTASTERIDE. [Concomitant]
     Active Substance: DUTASTERIDE
  10. NORTRIPTYLINE [Concomitant]
     Active Substance: NORTRIPTYLINE
  11. RISPERIDONE. [Concomitant]
     Active Substance: RISPERIDONE
  12. ATORVASTATIN CALCIUM. [Concomitant]
     Active Substance: ATORVASTATIN CALCIUM
  13. NOVO-PERIDOL [Suspect]
     Active Substance: HALOPERIDOL
     Dosage: 1 MILLIGRAM DAILY;
     Route: 048
  14. ACETAMINOPHEN. [Concomitant]
     Active Substance: ACETAMINOPHEN
  15. CELEBREX [Concomitant]
     Active Substance: CELECOXIB

REACTIONS (1)
  - Atrioventricular block [Recovered/Resolved]
